FAERS Safety Report 14273633 (Version 1)
Quarter: 2017Q4

REPORT INFORMATION
  Report Type: Spontaneous
  Country: US (occurrence: US)
  Receive Date: 20171212
  Receipt Date: 20171212
  Transmission Date: 20180321
  Serious: No
  Sender: FDA-Public Use
  Company Number: US-BAYER-2017-235121

PATIENT
  Age: 73 Year
  Sex: Female
  Weight: 91 kg

DRUGS (7)
  1. ALEVE [Suspect]
     Active Substance: NAPROXEN SODIUM
     Indication: PAIN
     Dosage: UNK
     Route: 048
     Dates: start: 2016, end: 2016
  2. LOVASTATIN. [Concomitant]
     Active Substance: LOVASTATIN
  3. BAYER LOW DOSE [Concomitant]
     Active Substance: ASPIRIN
     Dosage: UNK, QD
     Route: 048
     Dates: start: 2016
  4. CRESTOR [Concomitant]
     Active Substance: ROSUVASTATIN CALCIUM
  5. PLAVIX [Concomitant]
     Active Substance: CLOPIDOGREL BISULFATE
  6. METOPROLOL. [Concomitant]
     Active Substance: METOPROLOL
  7. TYLENOL [Concomitant]
     Active Substance: ACETAMINOPHEN

REACTIONS (5)
  - Wrong technique in product usage process [Unknown]
  - Renal function test abnormal [Recovered/Resolved]
  - Back pain [Recovered/Resolved]
  - Product use issue [Unknown]
  - Product quality issue [None]

NARRATIVE: CASE EVENT DATE: 2016
